FAERS Safety Report 10345182 (Version 1)
Quarter: 2014Q3

REPORT INFORMATION
  Report Type: Spontaneous
  Country: US (occurrence: US)
  Receive Date: 20140728
  Receipt Date: 20140728
  Transmission Date: 20150326
  Serious: No
  Sender: FDA-Public Use
  Company Number: US-BAYER-2014-110917

PATIENT
  Age: 24 Year
  Sex: Female

DRUGS (1)
  1. MIRENA [Suspect]
     Active Substance: LEVONORGESTREL
     Indication: CONTRACEPTION
     Dosage: 20 MCG/24HR, CONT
     Route: 015
     Dates: start: 20131001, end: 2014

REACTIONS (8)
  - Pregnancy with contraceptive device [Recovered/Resolved]
  - Abdominal pain lower [None]
  - Drug ineffective [None]
  - Amenorrhoea [Recovered/Resolved]
  - Device expulsion [Recovered/Resolved]
  - Menstrual discomfort [Recovered/Resolved]
  - Abdominal pain lower [Recovered/Resolved]
  - Menorrhagia [Recovered/Resolved]

NARRATIVE: CASE EVENT DATE: 2013
